FAERS Safety Report 4770972-4 (Version None)
Quarter: 2005Q3

REPORT INFORMATION
  Report Type: 
  Country: None (occurrence: None)
  Receive Date: 20050914
  Receipt Date: 20050825
  Transmission Date: 20060218
  Serious: Yes (Hospitalization)
  Sender: FDA-Public Use
  Company Number: JP_050506619

PATIENT
  Age: 78 Year
  Sex: Male
  Weight: 60 kg

DRUGS (7)
  1. GEMZAR [Suspect]
     Indication: PANCREATIC CARCINOMA
     Dosage: 1200 MG OTHER
     Route: 050
     Dates: start: 20050507, end: 20050513
  2. MUCOSTA (REBAMIPIDE) [Concomitant]
  3. AMARYL [Concomitant]
  4. BIOFERMIN [Concomitant]
  5. ADALAT CR /SCH/ (NIFEDIPINE) [Concomitant]
  6. DIOVAN /SCH/ (VALSARTAN) [Concomitant]
  7. ZANTAC [Concomitant]

REACTIONS (7)
  - BLISTER [None]
  - BONE MARROW DEPRESSION [None]
  - DRUG ERUPTION [None]
  - ERYTHEMA [None]
  - PAIN [None]
  - PYREXIA [None]
  - STOMACH DISCOMFORT [None]
